FAERS Safety Report 4529959-9 (Version None)
Quarter: 2004Q4

REPORT INFORMATION
  Report Type: 
  Country: None (occurrence: None)
  Receive Date: 20041215
  Receipt Date: 20041215
  Transmission Date: 20050328
  Serious: Yes (Hospitalization)
  Sender: FDA-Public Use
  Company Number: None

PATIENT
  Sex: Female
  Weight: 68 kg

DRUGS (3)
  1. MESNA [Suspect]
     Indication: SARCOMA
     Dosage: EVERY 3 WEEKS1462 -12 DOSES OVER 4 DAYS EVERY 3 WEEKS
     Dates: end: 20041112
  2. EPIRUBICIN [Suspect]
     Dosage: EVERY 3 WEEKS 156 MG -QD X 4 DAYS
     Dates: end: 20041112
  3. IFOSFAMIDE [Suspect]
     Dosage: 4300 MG X4 DAYS EVERY 3 WEEKS
     Dates: end: 20041112

REACTIONS (3)
  - EPISTAXIS [None]
  - MOUTH HAEMORRHAGE [None]
  - NEUTROPENIA [None]
